FAERS Safety Report 19954954 (Version 1)
Quarter: 2021Q4

REPORT INFORMATION
  Report Type: Spontaneous
  Country: US (occurrence: US)
  Receive Date: 20211013
  Receipt Date: 20211013
  Transmission Date: 20220303
  Serious: Yes (Death, Other)
  Sender: FDA-Public Use
  Company Number: US-LANTHEUS-LMI-2021-00207

PATIENT
  Age: 59 Year
  Sex: Male

DRUGS (14)
  1. DEFINITY [Suspect]
     Active Substance: PERFLUTREN
     Indication: Echocardiogram
     Dosage: 1.5 ML (1.3 ML DEFINITY PREPARED IN 8.7 ML DILUENT)
     Route: 042
     Dates: start: 20210330, end: 20210330
  2. LASIX [Concomitant]
     Active Substance: FUROSEMIDE
     Indication: Product used for unknown indication
     Dosage: UNK
  3. SPIRONOLACTONE [Concomitant]
     Active Substance: SPIRONOLACTONE
     Indication: Product used for unknown indication
     Dosage: UNK
  4. ALBUTEROL [Concomitant]
     Active Substance: ALBUTEROL
     Indication: Product used for unknown indication
     Dosage: UNK
     Route: 055
  5. LISINOPRIL [Concomitant]
     Active Substance: LISINOPRIL
     Indication: Product used for unknown indication
     Dosage: UNK
  6. CEFTRIAXONE [Concomitant]
     Active Substance: CEFTRIAXONE
     Indication: Product used for unknown indication
     Dosage: UNK
  7. ROSUVASTATIN [Concomitant]
     Active Substance: ROSUVASTATIN
     Indication: Product used for unknown indication
     Dosage: UNK
  8. SERTRALINE [Concomitant]
     Active Substance: SERTRALINE HYDROCHLORIDE
     Indication: Product used for unknown indication
     Dosage: UNK
  9. GABAPENTIN [Concomitant]
     Active Substance: GABAPENTIN
     Indication: Product used for unknown indication
     Dosage: UNK
  10. RIFAXIMIN [Concomitant]
     Active Substance: RIFAXIMIN
     Indication: Product used for unknown indication
     Dosage: UNK
  11. LACTULOSE [Concomitant]
     Active Substance: LACTULOSE
     Indication: Product used for unknown indication
     Dosage: UNK
  12. INSULIN NOS [Concomitant]
     Active Substance: INSULIN NOS
     Indication: Product used for unknown indication
     Dosage: UNK
  13. PANTOPRAZOLE [Concomitant]
     Active Substance: PANTOPRAZOLE
     Indication: Product used for unknown indication
     Dosage: UNK
  14. DEXTROSE [Concomitant]
     Active Substance: DEXTROSE
     Indication: Product used for unknown indication
     Dosage: UNK
     Route: 042

REACTIONS (2)
  - Death [Fatal]
  - Unresponsive to stimuli [Unknown]

NARRATIVE: CASE EVENT DATE: 20210330
